FAERS Safety Report 17415204 (Version 1)
Quarter: 2020Q1

REPORT INFORMATION
  Report Type: Report from Study
  Country: IT (occurrence: IT)
  Receive Date: 20200213
  Receipt Date: 20200213
  Transmission Date: 20200409
  Serious: Yes (Hospitalization, Other)
  Sender: FDA-Public Use
  Company Number: IT-PFIZER INC-2020061769

PATIENT
  Age: 69 Year
  Sex: Female

DRUGS (8)
  1. FORXIGA [Concomitant]
     Active Substance: DAPAGLIFLOZIN
  2. BIFRIZIDE [Suspect]
     Active Substance: HYDROCHLOROTHIAZIDE
     Indication: HYPERTENSION
     Dosage: 1 DF, 1X/DAY
     Route: 048
  3. CARDICOR [Concomitant]
     Active Substance: BISOPROLOL
  4. OLEVIA [Concomitant]
     Active Substance: OMEGA-3-ACID ETHYL ESTERS
  5. INSULIN [Concomitant]
     Active Substance: INSULIN NOS
     Dosage: 4 DF, UNK
  6. CARDURA [Suspect]
     Active Substance: DOXAZOSIN MESYLATE
     Indication: HYPERTENSION
     Dosage: 4 MG, 1X/DAY
     Route: 048
  7. LOBIVON [Suspect]
     Active Substance: NEBIVOLOL HYDROCHLORIDE
     Indication: HYPERTENSION
     Dosage: 5 MG, 1X/DAY
     Route: 048
  8. METFORMIN [Concomitant]
     Active Substance: METFORMIN HYDROCHLORIDE
     Dosage: 2000 MG, UNK

REACTIONS (2)
  - Drug ineffective [Recovering/Resolving]
  - Hypertensive crisis [Recovering/Resolving]

NARRATIVE: CASE EVENT DATE: 20200116
